FAERS Safety Report 5636950-8 (Version None)
Quarter: 2008Q1

REPORT INFORMATION
  Report Type: 
  Country: None (occurrence: None)
  Receive Date: 20080225
  Receipt Date: 20080212
  Transmission Date: 20080703
  Serious: Yes (Death, Hospitalization)
  Sender: FDA-Public Use
  Company Number: GR-AVENTIS-200811405GDDC

PATIENT
  Age: 35 Year
  Sex: Female

DRUGS (1)
  1. TELITHROMYCIN [Suspect]
     Dosage: DOSE: UNK

REACTIONS (5)
  - BRAIN OEDEMA [None]
  - BRONCHOPNEUMONIA [None]
  - CARDIAC ARREST [None]
  - GENERAL PHYSICAL HEALTH DETERIORATION [None]
  - HEADACHE [None]
